FAERS Safety Report 25573093 (Version 1)
Quarter: 2025Q3

REPORT INFORMATION
  Report Type: Spontaneous
  Country: US (occurrence: US)
  Receive Date: 20250717
  Receipt Date: 20250717
  Transmission Date: 20251020
  Serious: Yes (Other)
  Sender: PURDUE
  Company Number: US-PURDUE-USA-2025-0318910

PATIENT
  Age: 43 Year
  Sex: Male

DRUGS (3)
  1. DRONABINOL [Suspect]
     Active Substance: DRONABINOL
     Indication: Product used for unknown indication
     Route: 048
  2. CANNABIS SATIVA SUBSP. INDICA TOP [Suspect]
     Active Substance: CANNABIS SATIVA SUBSP. INDICA TOP
     Indication: Product used for unknown indication
     Route: 065
  3. COCAINE [Suspect]
     Active Substance: COCAINE
     Indication: Product used for unknown indication
     Route: 065

REACTIONS (13)
  - Bipolar disorder [Unknown]
  - Suicidal ideation [Unknown]
  - Mental impairment [Unknown]
  - Drug dependence [Unknown]
  - Impaired driving ability [Unknown]
  - Drug screen positive [Unknown]
  - Abnormal behaviour [Unknown]
  - Gait disturbance [Unknown]
  - Confusional state [Unknown]
  - Dysarthria [Unknown]
  - Speech disorder [Unknown]
  - Aggression [Unknown]
  - General physical condition abnormal [Unknown]

NARRATIVE: CASE EVENT DATE: 20240208
